FAERS Safety Report 9644023 (Version 3)
Quarter: 2013Q4

REPORT INFORMATION
  Report Type: Report from Study
  Country: US (occurrence: US)
  Receive Date: 20131024
  Receipt Date: 20131106
  Transmission Date: 20140711
  Serious: Yes (Hospitalization, Other)
  Sender: FDA-Public Use
  Company Number: US-ABBVIE-13P-163-1109727-00

PATIENT
  Age: 65 Year
  Sex: Female
  Weight: 59.02 kg

DRUGS (11)
  1. HUMIRA [Suspect]
     Indication: RHEUMATOID ARTHRITIS
     Route: 058
     Dates: start: 2006
  2. VITAMIN D2 [Concomitant]
     Indication: VITAMIN SUPPLEMENTATION
  3. DICLOFENAC SODIUM [Concomitant]
     Indication: RHEUMATOID ARTHRITIS
  4. SERTRALINE [Concomitant]
     Indication: GASTROOESOPHAGEAL REFLUX DISEASE
  5. JANUVIA [Concomitant]
     Indication: DIABETES MELLITUS
  6. PREDNISONE [Concomitant]
     Indication: RHEUMATOID ARTHRITIS
     Dosage: 15 MG DAILY
  7. PREDNISONE [Concomitant]
     Indication: PAIN
  8. LANTUS [Concomitant]
     Indication: DIABETES MELLITUS
     Dosage: 40 AT NIGHT AND 20 IN MORNING IF BLODD SUGAR OVER 200
  9. LISINOPRIL [Concomitant]
     Indication: HYPERTENSION
     Dosage: DAILY
  10. GLYBURIDE [Concomitant]
     Indication: DIABETES MELLITUS
     Dosage: DAILY
  11. VALIUM [Concomitant]
     Indication: ANXIETY

REACTIONS (9)
  - Splenomegaly [Recovered/Resolved]
  - Kidney infection [Recovered/Resolved]
  - White blood cell count decreased [Recovered/Resolved]
  - Red blood cell count decreased [Recovered/Resolved]
  - Splenic abscess [Recovered/Resolved]
  - White blood cell count decreased [Recovered/Resolved]
  - Transfusion [Unknown]
  - Decubitus ulcer [Recovered/Resolved]
  - Arthralgia [Not Recovered/Not Resolved]
